FAERS Safety Report 24768054 (Version 1)
Quarter: 2024Q4

REPORT INFORMATION
  Report Type: Report from Study
  Country: US (occurrence: US)
  Receive Date: 20241223
  Receipt Date: 20241223
  Transmission Date: 20250115
  Serious: No
  Sender: ASTELLAS
  Company Number: US-ASTELLAS-2024-AER-025627

PATIENT
  Sex: Female

DRUGS (1)
  1. FEZOLINETANT [Suspect]
     Active Substance: FEZOLINETANT
     Indication: Product used for unknown indication
     Route: 050

REACTIONS (5)
  - Hot flush [Unknown]
  - Night sweats [Unknown]
  - Insomnia [Unknown]
  - Emotional distress [Unknown]
  - Drug ineffective [Unknown]
